FAERS Safety Report 17731344 (Version 5)
Quarter: 2020Q2

REPORT INFORMATION
  Report Type: Spontaneous
  Country: CN (occurrence: CN)
  Receive Date: 20200430
  Receipt Date: 20200629
  Transmission Date: 20200714
  Serious: Yes (Other)
  Sender: FDA-Public Use
  Company Number: CN-ELI_LILLY_AND_COMPANY-CN202004008804

PATIENT
  Age: 32 Year
  Sex: Female
  Weight: 52 kg

DRUGS (1)
  1. TALTZ [Suspect]
     Active Substance: IXEKIZUMAB
     Indication: PSORIASIS
     Dosage: 160 MG, SINGLE
     Route: 058
     Dates: start: 20200409, end: 202005

REACTIONS (10)
  - Lymphocyte count decreased [Unknown]
  - Mass [Not Recovered/Not Resolved]
  - Injection site swelling [Recovered/Resolved]
  - Papule [Not Recovered/Not Resolved]
  - Pruritus [Recovered/Resolved]
  - Serum sickness [Recovered/Resolved]
  - Erythema [Recovered/Resolved]
  - Rash macular [Recovered/Resolved]
  - White blood cell count increased [Unknown]
  - Injection site erythema [Not Recovered/Not Resolved]

NARRATIVE: CASE EVENT DATE: 20200411
